FAERS Safety Report 4683264-9 (Version None)
Quarter: 2005Q2

REPORT INFORMATION
  Report Type: 
  Country: None (occurrence: None)
  Receive Date: 20050602
  Receipt Date: 20050314
  Transmission Date: 20051028
  Serious: No
  Sender: FDA-Public Use
  Company Number: USA050393139

PATIENT
  Sex: Female

DRUGS (3)
  1. CYMBALTA [Suspect]
     Indication: URINARY INCONTINENCE
     Dosage: 30 MG DAY
     Dates: start: 20050201
  2. LASIX [Concomitant]
  3. INSULIN [Concomitant]

REACTIONS (1)
  - HALLUCINATION, VISUAL [None]
